FAERS Safety Report 4339346-4 (Version None)
Quarter: 2004Q2

REPORT INFORMATION
  Report Type: 
  Country: None (occurrence: None)
  Receive Date: 20040414
  Receipt Date: 20040414
  Transmission Date: 20050107
  Serious: Yes (Life-Threatening, Hospitalization)
  Sender: FDA-Public Use
  Company Number: None

PATIENT
  Age: 32 Year
  Sex: Female
  Weight: 63.5036 kg

DRUGS (1)
  1. LAMICTAL [Suspect]
     Indication: BIPOLAR DISORDER
     Dosage: 100 MG 1/DAY ORAL
     Route: 048

REACTIONS (3)
  - BRADYCARDIA [None]
  - LIVER FUNCTION TEST ABNORMAL [None]
  - STEVENS-JOHNSON SYNDROME [None]
